FAERS Safety Report 24711657 (Version 3)
Quarter: 2025Q1

REPORT INFORMATION
  Report Type: Spontaneous
  Country: US (occurrence: US)
  Receive Date: 20241209
  Receipt Date: 20250225
  Transmission Date: 20250408
  Serious: Yes (Other)
  Sender: NOVARTIS
  Company Number: US-002147023-NVSC2024US233117

PATIENT
  Sex: Female
  Weight: 68.95 kg

DRUGS (6)
  1. LETROZOLE [Suspect]
     Active Substance: LETROZOLE
     Indication: Product used for unknown indication
     Dosage: 2.5 MG, QD
     Route: 065
  2. ZOMETA [Suspect]
     Active Substance: ZOLEDRONIC ACID
     Indication: HER2 positive breast cancer
     Route: 042
     Dates: start: 2024
  3. RECLAST [Suspect]
     Active Substance: ZOLEDRONIC ACID
     Indication: Breast cancer
     Route: 042
  4. IBRANCE [Suspect]
     Active Substance: PALBOCICLIB
     Indication: Breast cancer metastatic
     Dosage: 1 DOSAGE FORM, QD ( DAILY FOR 21 DAYS AND OFF FOR 7 DAYS) (125 MG CYCLIC )
     Route: 065
     Dates: start: 202308
  5. IBRANCE [Suspect]
     Active Substance: PALBOCICLIB
     Route: 065
  6. HYDRALAZINE [Concomitant]
     Active Substance: HYDRALAZINE HYDROCHLORIDE
     Indication: Hypertension
     Route: 065

REACTIONS (12)
  - Metastases to bone [Unknown]
  - Malignant neoplasm progression [Unknown]
  - Speech disorder [Unknown]
  - Hypoacusis [Unknown]
  - Muscle spasms [Unknown]
  - Blood calcium abnormal [Unknown]
  - Condition aggravated [Unknown]
  - Anxiety [Unknown]
  - Pain [Unknown]
  - Adverse drug reaction [Unknown]
  - Blood potassium increased [Unknown]
  - Haemoglobin decreased [Unknown]
